FAERS Safety Report 19365981 (Version 1)
Quarter: 2021Q2

REPORT INFORMATION
  Report Type: Report from Study
  Country: US (occurrence: US)
  Receive Date: 20210602
  Receipt Date: 20210602
  Transmission Date: 20210717
  Serious: No
  Sender: FDA-Public Use
  Company Number: US-DOVA PHARMACEUTICALS INC.-DOV-000893

PATIENT
  Sex: Female
  Weight: 60.77 kg

DRUGS (1)
  1. DOPTELET [Suspect]
     Active Substance: AVATROMBOPAG MALEATE
     Indication: IMMUNE THROMBOCYTOPENIA
     Dosage: UNK
     Route: 048
     Dates: start: 2020

REACTIONS (4)
  - Headache [Unknown]
  - Myalgia [Unknown]
  - Oropharyngeal pain [Unknown]
  - Dizziness [Unknown]
